FAERS Safety Report 6300442-3 (Version None)
Quarter: 2009Q3

REPORT INFORMATION
  Report Type: 
  Country: None (occurrence: None)
  Receive Date: 20090806
  Receipt Date: 20080930
  Transmission Date: 20100115
  Serious: No
  Sender: FDA-Public Use
  Company Number: US-ABBOTT-08P-163-0479025-00

PATIENT

DRUGS (2)
  1. DEPAKOTE ER [Suspect]
     Indication: DRUG USE FOR UNKNOWN INDICATION
  2. PHOSLO [Concomitant]
     Indication: BLOOD PHOSPHORUS ABNORMAL

REACTIONS (1)
  - DRUG LEVEL DECREASED [None]
